FAERS Safety Report 6042726-2 (Version None)
Quarter: 2009Q1

REPORT INFORMATION
  Report Type: 
  Country: None (occurrence: None)
  Receive Date: 20090119
  Receipt Date: 20090108
  Transmission Date: 20090719
  Serious: Yes (Other)
  Sender: FDA-Public Use
  Company Number: BR-BAYER-200910209LA

PATIENT
  Age: 28 Year
  Sex: Female

DRUGS (2)
  1. YASMIN [Suspect]
     Indication: ORAL CONTRACEPTION
     Route: 048
     Dates: start: 20080901, end: 20081201
  2. CERAZETTE [Concomitant]
     Indication: CONTRACEPTION
     Route: 048
     Dates: end: 20080901

REACTIONS (2)
  - ANTEPARTUM HAEMORRHAGE [None]
  - PREGNANCY ON ORAL CONTRACEPTIVE [None]
